FAERS Safety Report 21576490 (Version 1)
Quarter: 2022Q4

REPORT INFORMATION
  Report Type: Spontaneous
  Country: PT (occurrence: PT)
  Receive Date: 20221110
  Receipt Date: 20221110
  Transmission Date: 20230113
  Serious: Yes (Other)
  Sender: FDA-Public Use
  Company Number: PT-INFARMED-J202210-628

PATIENT
  Age: 62 Year
  Sex: Female

DRUGS (1)
  1. AMOXICILLIN [Suspect]
     Active Substance: AMOXICILLIN
     Indication: Dental care
     Dosage: UNK
     Route: 065
     Dates: start: 20200623

REACTIONS (7)
  - Oedema peripheral [Recovered/Resolved]
  - Dyspnoea [Recovered/Resolved]
  - Rash [Recovered/Resolved]
  - Vomiting [Recovered/Resolved]
  - Oropharyngeal discomfort [Recovered/Resolved]
  - Oral discomfort [Recovered/Resolved]
  - Genital paraesthesia [Recovered/Resolved]

NARRATIVE: CASE EVENT DATE: 20200623
